FAERS Safety Report 12145648 (Version 1)
Quarter: 2016Q1

REPORT INFORMATION
  Report Type: Spontaneous
  Country: US (occurrence: None)
  Receive Date: 20160303
  Receipt Date: 20160303
  Transmission Date: 20160526
  Serious: Yes (Hospitalization)
  Sender: FDA-Public Use
  Company Number: None

PATIENT
  Age: 44 Year
  Sex: Female
  Weight: 86 kg

DRUGS (1)
  1. XELODA [Suspect]
     Active Substance: CAPECITABINE
     Dates: end: 20151017

REACTIONS (4)
  - Vomiting [None]
  - Perineal pain [None]
  - Nausea [None]
  - Wound dehiscence [None]

NARRATIVE: CASE EVENT DATE: 20160205
